FAERS Safety Report 7729385-5 (Version None)
Quarter: 2011Q3

REPORT INFORMATION
  Report Type: 
  Country: None (occurrence: None)
  Receive Date: 20110906
  Receipt Date: 20110829
  Transmission Date: 20111222
  Serious: Yes (Death)
  Sender: FDA-Public Use
  Company Number: JP-JNJFOC-20091207212

PATIENT
  Age: 59 Year
  Sex: Female
  Weight: 57 kg

DRUGS (30)
  1. DOXORUBICIN HCL [Suspect]
     Route: 042
     Dates: start: 20090602, end: 20090602
  2. PROCHLORPERAZINE [Concomitant]
     Indication: PROPHYLAXIS
     Route: 048
     Dates: end: 20090724
  3. FAMOTIDINE [Concomitant]
     Indication: PROPHYLAXIS
     Route: 042
     Dates: start: 20090729, end: 20090805
  4. DOXORUBICIN HCL [Suspect]
     Indication: OVARIAN CANCER RECURRENT
     Route: 042
     Dates: start: 20090630, end: 20090630
  5. DORAL [Concomitant]
     Route: 048
     Dates: end: 20090724
  6. LEXOTAN [Concomitant]
     Route: 048
     Dates: end: 20090724
  7. FAMOTIDINE [Concomitant]
     Indication: PROPHYLAXIS
     Route: 048
     Dates: end: 20090724
  8. SHAKUYAKU-K ANZO-TO [Concomitant]
     Route: 048
     Dates: end: 20090611
  9. OXINORM [Concomitant]
     Route: 048
     Dates: end: 20090724
  10. ALL OTHER THERAPEUTIC PRODUCT [Concomitant]
     Route: 042
     Dates: start: 20090726, end: 20090729
  11. LASIX [Concomitant]
     Route: 048
     Dates: end: 20090608
  12. TPN ELECTROLYTES IN PLASTIC CONTAINER [Concomitant]
     Route: 042
     Dates: start: 20090715, end: 20090725
  13. DECADRON [Concomitant]
     Route: 042
     Dates: start: 20090602, end: 20090602
  14. DEXTROSE [Concomitant]
     Route: 042
     Dates: start: 20090602, end: 20090602
  15. MEROPENEM HYDRATE [Concomitant]
     Route: 042
     Dates: start: 20090728, end: 20090805
  16. OXYCONTIN [Concomitant]
     Route: 048
     Dates: end: 20090727
  17. AMINOLEBAN [Concomitant]
     Route: 042
     Dates: start: 20090729, end: 20090805
  18. DIOVAN [Concomitant]
     Route: 048
     Dates: end: 20090606
  19. MUCOSTA [Concomitant]
     Route: 048
     Dates: end: 20090611
  20. DECADRON [Concomitant]
     Route: 042
     Dates: start: 20090630, end: 20090630
  21. MOBIC [Concomitant]
     Indication: PROPHYLAXIS
     Route: 048
     Dates: end: 20090724
  22. METHYCOBAL [Concomitant]
     Route: 048
     Dates: end: 20090606
  23. DEXTROSE [Concomitant]
     Route: 042
     Dates: start: 20090630, end: 20090630
  24. DEXTROSE [Concomitant]
     Route: 042
     Dates: start: 20090729, end: 20090805
  25. ROHYPNOL [Concomitant]
     Route: 048
     Dates: end: 20090724
  26. DESYREL [Concomitant]
     Route: 048
     Dates: end: 20090724
  27. LOXONIN [Concomitant]
     Route: 048
     Dates: end: 20090630
  28. ALBUMIN (HUMAN) [Concomitant]
     Route: 041
     Dates: start: 20090610, end: 20090711
  29. LASIX [Concomitant]
     Route: 048
     Dates: start: 20090609, end: 20090708
  30. FULCALIQ 1 [Concomitant]
     Route: 042
     Dates: start: 20090726, end: 20090729

REACTIONS (2)
  - RENAL IMPAIRMENT [None]
  - OVARIAN CANCER [None]
